FAERS Safety Report 21398458 (Version 1)
Quarter: 2022Q3

REPORT INFORMATION
  Report Type: Report from Study
  Country: CA (occurrence: CA)
  Receive Date: 20220930
  Receipt Date: 20220930
  Transmission Date: 20221027
  Serious: Yes (Other)
  Sender: FDA-Public Use
  Company Number: CA-GILEAD-2022-0592969

PATIENT
  Age: 47 Year
  Sex: Female

DRUGS (16)
  1. SACITUZUMAB GOVITECAN [Suspect]
     Active Substance: SACITUZUMAB GOVITECAN
     Indication: Triple negative breast cancer
     Dosage: 600 MG
     Route: 042
     Dates: start: 20220107, end: 20220915
  2. ACETAMINOPHEN [Concomitant]
     Active Substance: ACETAMINOPHEN
     Dosage: 650 MG PO (PRE-MEDICATION PRIOR TO TRODELVY)
  3. ACETAMINOPHEN [Concomitant]
     Active Substance: ACETAMINOPHEN
     Dosage: 650 MG PO (PRE-MEDICATION PRIOR TO TRODELVY)
  4. ACETAMINOPHEN [Concomitant]
     Active Substance: ACETAMINOPHEN
     Dosage: 650 MG PO (PRE-MEDICATION PRIOR TO TRODELVY)
  5. ACETAMINOPHEN [Concomitant]
     Active Substance: ACETAMINOPHEN
     Dosage: 650 MG PO (PRE-MEDICATION PRIOR TO TRODELVY)
  6. DIPHENHYDRAMINE [Concomitant]
     Active Substance: DIPHENHYDRAMINE
     Dosage: 50 MG PO (PRE-MEDICATION PRIOR TO TRODELVY)
  7. DIPHENHYDRAMINE [Concomitant]
     Active Substance: DIPHENHYDRAMINE
     Dosage: 50 MG PO (PRE-MEDICATION PRIOR TO TRODELVY)
  8. DIPHENHYDRAMINE [Concomitant]
     Active Substance: DIPHENHYDRAMINE
     Dosage: 50 GM PO (PRE-MEDICATION PRIOR TO TRODELVY)
  9. DIPHENHYDRAMINE [Concomitant]
     Active Substance: DIPHENHYDRAMINE
     Dosage: 50 GM PO (PRE-MEDICATION PRIOR TO TRODELVY)
  10. FAMOTIDINE [Concomitant]
     Active Substance: FAMOTIDINE
     Dosage: 40 MG PO (PRE-MEDICATION PRIOR TO TRODELVY)
  11. FAMOTIDINE [Concomitant]
     Active Substance: FAMOTIDINE
     Dosage: 40 MG PO (PRE-MEDICATION PRIOR TO TRODELVY)
  12. FAMOTIDINE [Concomitant]
     Active Substance: FAMOTIDINE
     Dosage: 40 MG PO (PRE-MEDICATION PRIOR TO TRODELVY)
  13. TAXOL [Concomitant]
     Active Substance: PACLITAXEL
  14. CAPECITABINE [Concomitant]
     Active Substance: CAPECITABINE
  15. GRANISETRON [Concomitant]
     Active Substance: GRANISETRON
     Dosage: 2 MG ORAL (PRE-MEDICATION PRIOR TO TRODELVY)
  16. AMLODIPINE BESYLATE [Concomitant]
     Active Substance: AMLODIPINE BESYLATE
     Indication: Hypertension

REACTIONS (7)
  - Disease progression [Not Recovered/Not Resolved]
  - Weight fluctuation [Unknown]
  - Weight decreased [Unknown]
  - Impaired self-care [Unknown]
  - Bedridden [Unknown]
  - Weight decreased [Unknown]
  - Heart rate increased [Unknown]

NARRATIVE: CASE EVENT DATE: 20220818
